FAERS Safety Report 21126052 (Version 1)
Quarter: 2022Q3

REPORT INFORMATION
  Report Type: Spontaneous
  Country: US (occurrence: None)
  Receive Date: 20220723
  Receipt Date: 20220723
  Transmission Date: 20221026
  Serious: Yes (Disabling)
  Sender: FDA-Public Use
  Company Number: None

PATIENT
  Age: 62 Year
  Sex: Female
  Weight: 47.25 kg

DRUGS (12)
  1. EMGALITY [Suspect]
     Active Substance: GALCANEZUMAB-GNLM
     Indication: Headache
     Dosage: FREQUENCY : MONTHLY;?
     Route: 058
     Dates: start: 20220623, end: 20220623
  2. SYNTHROID [Concomitant]
     Active Substance: LEVOTHYROXINE SODIUM
  3. PANTOPRAZOLE [Concomitant]
     Active Substance: PANTOPRAZOLE
  4. LORAZEPAM [Concomitant]
     Active Substance: LORAZEPAM
  5. BACLOFEN [Concomitant]
     Active Substance: BACLOFEN
  6. METHYLPHENIDATE [Concomitant]
     Active Substance: METHYLPHENIDATE
  7. LIOTHYRONINE [Concomitant]
     Active Substance: LIOTHYRONINE
  8. VITAMIN D [Concomitant]
     Active Substance: VITAMIN D NOS
  9. CALCIUM [Concomitant]
     Active Substance: CALCIUM
  10. Guifenisen [Concomitant]
  11. TYLENOL [Concomitant]
     Active Substance: ACETAMINOPHEN
  12. OMEGA 3 [Concomitant]
     Active Substance: CAPSAICIN

REACTIONS (1)
  - Fibromyalgia [None]

NARRATIVE: CASE EVENT DATE: 20220623
